FAERS Safety Report 7481476-2 (Version None)
Quarter: 2011Q2

REPORT INFORMATION
  Report Type: 
  Country: None (occurrence: None)
  Receive Date: 20110516
  Receipt Date: 20110503
  Transmission Date: 20111010
  Serious: Yes (Hospitalization, Other)
  Sender: FDA-Public Use
  Company Number: PHHY2010DE08162

PATIENT
  Sex: Female
  Weight: 57 kg

DRUGS (11)
  1. GLEEVEC [Suspect]
     Indication: GRAFT VERSUS HOST DISEASE
     Dosage: 400 MG, DAILY
     Route: 048
     Dates: start: 20091101
  2. GLEEVEC [Suspect]
     Dosage: 100 MG, DAILY
     Route: 048
     Dates: start: 20101115, end: 20110325
  3. SANDIMMUNE [Concomitant]
     Indication: GRAFT VERSUS HOST DISEASE
     Dosage: 50 MG, BID
     Route: 048
     Dates: start: 20100901
  4. MYFORTIC [Concomitant]
     Indication: GRAFT VERSUS HOST DISEASE
     Dosage: 360 MG, BID
     Route: 048
     Dates: start: 20100901
  5. COTRIM [Concomitant]
     Indication: IMMUNOSUPPRESSION
     Dosage: 960 MG, QW3
     Route: 048
  6. HORMONES [Concomitant]
  7. GLEEVEC [Suspect]
     Dosage: 200 MG, DAILY
     Route: 048
     Dates: start: 20101115, end: 20110325
  8. CORTISON [Concomitant]
  9. GLEEVEC [Suspect]
     Dosage: 50 MG, DAILY
     Route: 048
  10. PREDNISOLONE [Concomitant]
     Dosage: COURSES
     Route: 048
     Dates: start: 20050801
  11. AZITHROMYCIN [Concomitant]
     Indication: IMMUNOSUPPRESSION
     Dosage: 250 MG, QW3
     Route: 048

REACTIONS (6)
  - DYSPNOEA [None]
  - CARDIAC DISORDER [None]
  - URINARY RETENTION [None]
  - OEDEMA PERIPHERAL [None]
  - PULMONARY FUNCTION TEST DECREASED [None]
  - INFLUENZA [None]
